FAERS Safety Report 7356303-4 (Version None)
Quarter: 2011Q1

REPORT INFORMATION
  Report Type: 
  Country: None (occurrence: None)
  Receive Date: 20110308
  Receipt Date: 20110225
  Transmission Date: 20110831
  Serious: Yes (Other)
  Sender: FDA-Public Use
  Company Number: 2011S1000063

PATIENT
  Age: 39 Year
  Sex: Male
  Weight: 95 kg

DRUGS (3)
  1. VALSARTAN [Concomitant]
  2. AMLODIPINE [Concomitant]
  3. LIVALO [Suspect]
     Indication: HYPERLIPIDAEMIA
     Dosage: 2 MG;1X;PO
     Route: 048
     Dates: start: 20101130, end: 20110105

REACTIONS (1)
  - RHABDOMYOLYSIS [None]
